FAERS Safety Report 6250338-0 (Version None)
Quarter: 2009Q2

REPORT INFORMATION
  Report Type: 
  Country: None (occurrence: None)
  Receive Date: 20090630
  Receipt Date: 20070919
  Transmission Date: 20091009
  Serious: Yes (Other)
  Sender: FDA-Public Use
  Company Number: US-ASTRAZENECA-2006UW21183

PATIENT
  Age: 55 Year
  Sex: Female
  Weight: 117.9 kg

DRUGS (21)
  1. SEROQUEL [Suspect]
     Indication: BIPOLAR DISORDER
     Route: 048
     Dates: start: 20000101, end: 20050101
  2. SEROQUEL [Suspect]
     Indication: DEPRESSION
     Route: 048
     Dates: start: 20000101, end: 20050101
  3. SEROQUEL [Suspect]
     Dosage: 25 - 200 MG, FLUCTUATING
     Route: 048
     Dates: start: 20020328
  4. SEROQUEL [Suspect]
     Dosage: 25 - 200 MG, FLUCTUATING
     Route: 048
     Dates: start: 20020328
  5. XANAX [Concomitant]
     Route: 048
     Dates: start: 20051014
  6. EFFEXOR XR [Concomitant]
     Dosage: 75 - 150 MG, FLUCTUATING
     Route: 048
     Dates: start: 20061014
  7. AMBIEN [Concomitant]
     Route: 048
     Dates: start: 20061024
  8. GLUCOTROL XL [Concomitant]
     Dosage: 5 -10 MG, FLUCTUATING
     Route: 048
     Dates: start: 20020213
  9. OXYCONTIN [Concomitant]
     Dosage: 40 - 80 MG, FLUCTUATING
     Route: 048
     Dates: start: 20070220
  10. NEURONTIN [Concomitant]
     Dosage: 600 - 2700 MG
     Route: 048
     Dates: start: 20040322
  11. VICODIN [Concomitant]
     Dosage: 5/500 - 7.5/500
     Route: 048
     Dates: start: 20050604
  12. TRAZODONE HCL [Concomitant]
     Route: 048
     Dates: start: 20000911
  13. METFORMIN HCL [Concomitant]
     Route: 048
     Dates: start: 20020328
  14. DEPAKOTE ER [Concomitant]
     Route: 048
     Dates: start: 20020328
  15. WELLBUTRIN [Concomitant]
     Dosage: 300 - 450 MG, FLUCTUATING
     Route: 048
     Dates: start: 20020328
  16. FUROSEMIDE INTENSOL [Concomitant]
     Dosage: 20 - 40 MG, FLUCTUATING
     Route: 048
     Dates: start: 20020419
  17. BACLOFEN [Concomitant]
     Indication: MUSCLE SPASMS
     Route: 048
     Dates: start: 20070423
  18. BACLOFEN [Concomitant]
     Indication: PAIN
     Route: 048
     Dates: start: 20070423
  19. BACLOFEN [Concomitant]
     Indication: ANXIETY
     Route: 048
     Dates: start: 20070423
  20. LUNESTA [Concomitant]
     Indication: SLEEP DISORDER
     Route: 048
     Dates: start: 20050930
  21. TAXOL [Concomitant]
     Dates: start: 20070523

REACTIONS (8)
  - ARTHRALGIA [None]
  - ARTHRITIS [None]
  - CHRONIC OBSTRUCTIVE PULMONARY DISEASE [None]
  - DIABETES MELLITUS [None]
  - NEUROPATHY PERIPHERAL [None]
  - OSTEOARTHRITIS [None]
  - TYPE 1 DIABETES MELLITUS [None]
  - TYPE 2 DIABETES MELLITUS [None]
